FAERS Safety Report 17161926 (Version 4)
Quarter: 2022Q1

REPORT INFORMATION
  Report Type: Other
  Country: JP (occurrence: JP)
  Receive Date: 20191217
  Receipt Date: 20220125
  Transmission Date: 20220423
  Serious: Yes (Other)
  Sender: FDA-Public Use
  Company Number: JP-CHUGAI-A2019023992ROCHE

PATIENT
  Age: 61 Year
  Sex: Female
  Weight: 51 kg

DRUGS (20)
  1. OBINUTUZUMAB [Suspect]
     Active Substance: OBINUTUZUMAB
     Indication: Follicular lymphoma
     Dosage: DOSE INTERVAL UNCERTAINTY
     Route: 041
     Dates: start: 20190530, end: 20190530
  2. OBINUTUZUMAB [Suspect]
     Active Substance: OBINUTUZUMAB
     Dosage: DOSE INTERVAL UNCERTAINTY
     Route: 041
     Dates: start: 20190606, end: 20190606
  3. OBINUTUZUMAB [Suspect]
     Active Substance: OBINUTUZUMAB
     Dosage: DOSE INTERVAL UNCERTAINTY
     Route: 041
     Dates: start: 20190613, end: 20190613
  4. OBINUTUZUMAB [Suspect]
     Active Substance: OBINUTUZUMAB
     Dosage: DOSE INTERVAL UNCERTAINTY
     Route: 041
     Dates: start: 20190627, end: 20190627
  5. OBINUTUZUMAB [Suspect]
     Active Substance: OBINUTUZUMAB
     Dosage: DOSE INTERVAL UNCERTAINTY
     Route: 041
     Dates: start: 20190725, end: 20190725
  6. OBINUTUZUMAB [Suspect]
     Active Substance: OBINUTUZUMAB
     Dosage: DOSE INTERVAL UNCERTAINTY
     Route: 041
     Dates: start: 20190822, end: 20190822
  7. OBINUTUZUMAB [Suspect]
     Active Substance: OBINUTUZUMAB
     Dosage: DOSE INTERVAL UNCERTAINTY
     Route: 041
     Dates: start: 20191014, end: 20191014
  8. OBINUTUZUMAB [Suspect]
     Active Substance: OBINUTUZUMAB
     Dosage: DOSE INTERVAL UNCERTAINTY
     Route: 041
     Dates: start: 20191113, end: 20191113
  9. OBINUTUZUMAB [Suspect]
     Active Substance: OBINUTUZUMAB
     Route: 041
     Dates: start: 20200108
  10. OBINUTUZUMAB [Suspect]
     Active Substance: OBINUTUZUMAB
     Route: 041
     Dates: start: 20200819
  11. OBINUTUZUMAB [Suspect]
     Active Substance: OBINUTUZUMAB
     Route: 041
     Dates: start: 20201014
  12. OBINUTUZUMAB [Suspect]
     Active Substance: OBINUTUZUMAB
     Route: 041
     Dates: start: 20201209
  13. OBINUTUZUMAB [Suspect]
     Active Substance: OBINUTUZUMAB
     Route: 041
     Dates: start: 20210203
  14. OBINUTUZUMAB [Suspect]
     Active Substance: OBINUTUZUMAB
     Route: 041
     Dates: start: 20210331
  15. OBINUTUZUMAB [Suspect]
     Active Substance: OBINUTUZUMAB
     Route: 041
     Dates: start: 20210526
  16. OBINUTUZUMAB [Suspect]
     Active Substance: OBINUTUZUMAB
     Route: 041
     Dates: start: 20210721
  17. OBINUTUZUMAB [Suspect]
     Active Substance: OBINUTUZUMAB
     Route: 041
     Dates: start: 20210915
  18. OBINUTUZUMAB [Suspect]
     Active Substance: OBINUTUZUMAB
     Route: 041
     Dates: start: 20211110
  19. OBINUTUZUMAB [Suspect]
     Active Substance: OBINUTUZUMAB
     Route: 041
     Dates: start: 20220105
  20. BENDAMUSTINE HYDROCHLORIDE [Suspect]
     Active Substance: BENDAMUSTINE HYDROCHLORIDE
     Indication: Follicular lymphoma
     Dosage: DOSAGE IS UNCERTAIN.
     Route: 041
     Dates: start: 20190530

REACTIONS (4)
  - Myelosuppression [Unknown]
  - Sinusitis [Recovered/Resolved]
  - Infusion related reaction [Recovered/Resolved]
  - CD4 lymphocytes decreased [Unknown]

NARRATIVE: CASE EVENT DATE: 20190530
